FAERS Safety Report 4305359-1 (Version None)
Quarter: 2004Q1

REPORT INFORMATION
  Report Type: 
  Country: None (occurrence: None)
  Receive Date: 20040226
  Receipt Date: 20030801
  Transmission Date: 20041129
  Serious: Yes (Death)
  Sender: FDA-Public Use
  Company Number: US-BRISTOL-MYERS SQUIBB COMPANY-12343034

PATIENT

DRUGS (1)
  1. TAXOL [Suspect]
     Indication: CARCINOMA
     Dosage: 30 MG/5 ML
     Route: 042

REACTIONS (1)
  - DYSPNOEA [None]
